FAERS Safety Report 4778987-7 (Version None)
Quarter: 2005Q3

REPORT INFORMATION
  Report Type: 
  Country: None (occurrence: None)
  Receive Date: 20050914
  Receipt Date: 20050519
  Transmission Date: 20060218
  Serious: Yes (Other)
  Sender: FDA-Public Use
  Company Number: 405362

PATIENT
  Age: 85 Year
  Sex: Female
  Weight: 57.6 kg

DRUGS (2)
  1. BONIVA [Suspect]
     Indication: OSTEOPOROSIS
     Dosage: 1 PER MONTH ORAL
     Route: 048
     Dates: start: 20050419
  2. VITAMIN SUPPLEMENT (VITAMIN NOS) [Concomitant]

REACTIONS (4)
  - COUGH [None]
  - FATIGUE [None]
  - FREQUENT BOWEL MOVEMENTS [None]
  - HAEMOGLOBIN DECREASED [None]
